FAERS Safety Report 6411243-X (Version None)
Quarter: 2009Q4

REPORT INFORMATION
  Report Type: 
  Country: None (occurrence: None)
  Receive Date: 20091020
  Receipt Date: 20091005
  Transmission Date: 20100525
  Serious: Yes (Hospitalization, Other)
  Sender: FDA-Public Use
  Company Number: 1000009286

PATIENT
  Age: 26 Year
  Sex: Female

DRUGS (1)
  1. CARBAMAZEPINE [Suspect]
     Indication: BACK PAIN

REACTIONS (17)
  - ACANTHOSIS [None]
  - ALANINE AMINOTRANSFERASE INCREASED [None]
  - ANGIOTENSIN CONVERTING ENZYME INCREASED [None]
  - ASPARTATE AMINOTRANSFERASE INCREASED [None]
  - BLOOD ALKALINE PHOSPHATASE INCREASED [None]
  - BLOOD BILIRUBIN INCREASED [None]
  - DERMATITIS [None]
  - DRUG RASH WITH EOSINOPHILIA AND SYSTEMIC SYMPTOMS [None]
  - GAMMA-GLUTAMYLTRANSFERASE INCREASED [None]
  - GRANULOMA [None]
  - HEPATOSPLENOMEGALY [None]
  - HYPERKERATOSIS [None]
  - LEUKOCYTOSIS [None]
  - LYMPHADENOPATHY [None]
  - LYMPHOCYTOSIS [None]
  - OCULAR ICTERUS [None]
  - SARCOIDOSIS [None]
